FAERS Safety Report 24937921 (Version 2)
Quarter: 2025Q1

REPORT INFORMATION
  Report Type: Report from Study
  Country: PE (occurrence: PE)
  Receive Date: 20250206
  Receipt Date: 20250321
  Transmission Date: 20250408
  Serious: Yes (Hospitalization, Other)
  Sender: NOVARTIS
  Company Number: PE-002147023-NVSC2023PE281915

PATIENT
  Age: 12 Year
  Sex: Female
  Weight: 38.5 kg

DRUGS (34)
  1. CYCLOSPORINE [Suspect]
     Active Substance: CYCLOSPORINE
     Indication: Chronic graft versus host disease
     Route: 048
     Dates: end: 20180319
  2. CYCLOSPORINE [Suspect]
     Active Substance: CYCLOSPORINE
     Dosage: 40 MG (0.4 ML), BID (IN THE MORNING AND AT NIGHT)
     Route: 048
     Dates: start: 20210610, end: 202205
  3. CYCLOSPORINE [Suspect]
     Active Substance: CYCLOSPORINE
     Route: 048
     Dates: end: 202305
  4. ACYCLOVIR [Concomitant]
     Active Substance: ACYCLOVIR
     Indication: Product used for unknown indication
     Dosage: 200 MG, Q12H (2 TABLETS)
     Route: 048
  5. ACYCLOVIR [Concomitant]
     Active Substance: ACYCLOVIR
     Dosage: 300 MG, Q8H
     Route: 065
     Dates: start: 20181204
  6. ALBUTEROL [Concomitant]
     Active Substance: ALBUTEROL
     Indication: Bronchial obstruction
     Route: 065
  7. ALBUTEROL [Concomitant]
     Active Substance: ALBUTEROL
     Indication: Bronchospasm
     Dosage: 2 PUFFS EVERY 6 HOURS
     Route: 065
  8. ALBUTEROL [Concomitant]
     Active Substance: ALBUTEROL
     Route: 065
     Dates: start: 20210325
  9. BUDESONIDE [Concomitant]
     Active Substance: BUDESONIDE
     Indication: Product used for unknown indication
     Dosage: 2 DOSAGE FORM, (200UG)
     Route: 065
  10. BUDESONIDE [Concomitant]
     Active Substance: BUDESONIDE
     Dosage: 200UG, 2 PUFFS EVERY 12 HOURS (THEN, MOUTHWASH).
     Route: 065
  11. BUDESONIDE [Concomitant]
     Active Substance: BUDESONIDE
     Dosage: 200 UG (2 PUFFS EVERY 12 HOURS)
     Route: 065
     Dates: start: 20210416
  12. BUDESONIDE [Concomitant]
     Active Substance: BUDESONIDE
     Dosage: 200 UG (2 PUFFS EVERY 12 HOURS)
     Route: 065
     Dates: start: 20210426
  13. SULFAMETHOXAZOLE AND TRIMETHOPRIM [Concomitant]
     Active Substance: SULFAMETHOXAZOLE\TRIMETHOPRIM
     Indication: Product used for unknown indication
     Dosage: 800MG/160MG 1 TABLET EVERY 12 HOURS (MONDAY, WEDNESDAY, FRIDAY)
     Route: 065
  14. SULFAMETHOXAZOLE AND TRIMETHOPRIM [Concomitant]
     Active Substance: SULFAMETHOXAZOLE\TRIMETHOPRIM
     Dosage: 800MG/160MG 1 TABLET EVERY 24 HOURS
     Route: 048
     Dates: start: 20190115
  15. TACROLIMUS [Concomitant]
     Active Substance: TACROLIMUS
     Indication: Chronic graft versus host disease in lung
     Dosage: 5 MG, QD (EVERY 24 HOURS)
     Route: 048
     Dates: start: 20230718
  16. PREDNISONE [Concomitant]
     Active Substance: PREDNISONE
     Indication: Chronic graft versus host disease in lung
     Dosage: 15 MG, QD
     Route: 065
  17. PREDNISONE [Concomitant]
     Active Substance: PREDNISONE
     Route: 065
  18. PREDNISONE [Concomitant]
     Active Substance: PREDNISONE
     Route: 065
  19. PREDNISONE [Concomitant]
     Active Substance: PREDNISONE
     Dosage: 5 MG, Q24H
     Route: 048
  20. PREDNISONE [Concomitant]
     Active Substance: PREDNISONE
     Dosage: 15 MG DAILY (MONDAY, WEDNESDAY, FRIDAY) AND 10 MG (TUESDAY, THURSDAY, SATURDAY, SUNDAY)
     Route: 065
     Dates: start: 20200326, end: 20230202
  21. PREDNISONE [Concomitant]
     Active Substance: PREDNISONE
     Dosage: 15 MG DAILY (MONDAY, WEDNESDAY, FRIDAY) AND 10 MG (TUESDAY, THURSDAY, SATURDAY, SUNDAY)
     Route: 065
     Dates: start: 20230626
  22. FLUOXETINE [Concomitant]
     Active Substance: FLUOXETINE HYDROCHLORIDE
     Indication: Product used for unknown indication
     Route: 065
  23. FLUOXETINE [Concomitant]
     Active Substance: FLUOXETINE HYDROCHLORIDE
     Dosage: 10 MG, QD
     Route: 065
     Dates: start: 20210408, end: 202412
  24. HALOPERIDOL [Concomitant]
     Active Substance: HALOPERIDOL
     Indication: Product used for unknown indication
     Route: 065
  25. HALOPERIDOL [Concomitant]
     Active Substance: HALOPERIDOL
     Dosage: 2 MILLIGRAM PER MILLILITRE QD (3 DROPS DAILY CONDITIONAL ON AGITATION)
     Route: 065
     Dates: start: 20210408
  26. HALOPERIDOL [Concomitant]
     Active Substance: HALOPERIDOL
     Dosage: 2 MILLIGRAM PER MILLILITRE QD (3 DROPS DAILY CONDITIONAL ON AGITATION)
     Route: 065
     Dates: start: 20210804
  27. Magnesol [Concomitant]
     Indication: Product used for unknown indication
     Dosage: 1 BAG EVERY 48 HOURS
     Route: 065
  28. Magnesol [Concomitant]
     Dosage: 5 G, Q12H (SACHET)
     Route: 065
     Dates: start: 20211223, end: 202305
  29. IPRATROPIUM BROMIDE [Concomitant]
     Active Substance: IPRATROPIUM BROMIDE
     Indication: Product used for unknown indication
     Dosage: 2 PUFFS EVERY 6 HOURS
     Route: 065
  30. IPRATROPIUM BROMIDE [Concomitant]
     Active Substance: IPRATROPIUM BROMIDE
     Route: 065
     Dates: start: 20210325
  31. MONTELUKAST [Concomitant]
     Active Substance: MONTELUKAST
     Indication: Product used for unknown indication
     Dosage: 5 MG, Q24H
     Route: 048
  32. MONTELUKAST [Concomitant]
     Active Substance: MONTELUKAST
     Dosage: 5 MG, QH
     Route: 048
     Dates: start: 20210416
  33. AZITHROMYCIN [Concomitant]
     Active Substance: AZITHROMYCIN
     Indication: Product used for unknown indication
     Dosage: 250 MG (MONDAYS, WEDNESDAY, AND FRIDAYS)
     Route: 048
  34. AZITHROMYCIN [Concomitant]
     Active Substance: AZITHROMYCIN
     Dosage: 250 MG, Q24H
     Route: 048
     Dates: start: 20210416

REACTIONS (3)
  - Pneumonia [Recovered/Resolved]
  - Lung disorder [Not Recovered/Not Resolved]
  - Spirometry abnormal [Unknown]

NARRATIVE: CASE EVENT DATE: 20221001
